FAERS Safety Report 6817571-8 (Version None)
Quarter: 2010Q3

REPORT INFORMATION
  Report Type: 
  Country: None (occurrence: None)
  Receive Date: 20100706
  Receipt Date: 20100623
  Transmission Date: 20110219
  Serious: Yes (Hospitalization)
  Sender: FDA-Public Use
  Company Number: US-TEVA-238662USA

PATIENT
  Sex: Female

DRUGS (3)
  1. AMITRIPTYLINE HYDROCHLORIDE [Interacting]
  2. GABAPENTIN [Interacting]
  3. GLATIRAMER ACETATE [Suspect]
     Indication: MULTIPLE SCLEROSIS
     Route: 058

REACTIONS (3)
  - DRUG INTERACTION [None]
  - MALAISE [None]
  - SYNCOPE [None]
